FAERS Safety Report 4919171-3 (Version None)
Quarter: 2006Q1

REPORT INFORMATION
  Report Type: 
  Country: None (occurrence: None)
  Receive Date: 20060222
  Receipt Date: 20051220
  Transmission Date: 20060701
  Serious: Yes (Other)
  Sender: FDA-Public Use
  Company Number: US-BRISTOL-MYERS SQUIBB COMPANY-13224373

PATIENT
  Age: 42 Year
  Sex: Male
  Weight: 82 kg

DRUGS (4)
  1. ERBITUX [Suspect]
     Indication: TONGUE NEOPLASM MALIGNANT STAGE UNSPECIFIED
     Dosage: REC'D ON 30-NOV-05, 06-DEC-05 AND THE LAST ON 14-DEC-05/INTERRUPTED 20-DEC-2005/ADMIN. 28-DEC-2005.
     Route: 042
     Dates: start: 20051214, end: 20051214
  2. CARBOPLATIN [Concomitant]
     Dosage: ADMINISTERED ON 30-NOV-2005, 06-DEC-2005.
     Dates: start: 20051214, end: 20051214
  3. TAXOL [Concomitant]
     Dosage: ADMINISTERED ON 30-NOV-2005, 06-DEC-2005, 14-DEC-2005, 22-DEC-2005.
     Dates: start: 20051214, end: 20051214
  4. ZYVOX [Concomitant]

REACTIONS (1)
  - HEPATIC ENZYME INCREASED [None]
